FAERS Safety Report 24697269 (Version 1)
Quarter: 2024Q4

REPORT INFORMATION
  Report Type: Spontaneous
  Country: US (occurrence: US)
  Receive Date: 20241204
  Receipt Date: 20241204
  Transmission Date: 20250114
  Serious: No
  Sender: BAYER HEALTHCARE LLC
  Company Number: US-BAYER-2024A171061

PATIENT
  Age: 78 Year
  Sex: Female

DRUGS (2)
  1. CLARITIN-D NOS [Suspect]
     Active Substance: LORATADINE\PSEUDOEPHEDRINE SULFATE
     Indication: Hypersensitivity
     Dosage: 3 DF
     Route: 048
     Dates: start: 20241127, end: 20241128
  2. CLARITIN-D NOS [Suspect]
     Active Substance: LORATADINE\PSEUDOEPHEDRINE SULFATE
     Indication: Nasopharyngitis

REACTIONS (3)
  - Anxiety [Recovered/Resolved]
  - Headache [Recovered/Resolved]
  - Incorrect dose administered [None]

NARRATIVE: CASE EVENT DATE: 20241127
